FAERS Safety Report 25770230 (Version 1)
Quarter: 2025Q3

REPORT INFORMATION
  Report Type: Spontaneous
  Country: US (occurrence: US)
  Receive Date: 20250907
  Receipt Date: 20250907
  Transmission Date: 20251020
  Serious: Yes (Hospitalization)
  Sender: HETERO
  Company Number: US-AMAROX PHARMA-HET2025US05179

PATIENT
  Age: 49 Year
  Sex: Male

DRUGS (8)
  1. LINEZOLID [Suspect]
     Active Substance: LINEZOLID
     Indication: Serratia infection
     Route: 065
  2. LINEZOLID [Suspect]
     Active Substance: LINEZOLID
     Indication: Klebsiella infection
  3. LINEZOLID [Suspect]
     Active Substance: LINEZOLID
     Indication: Staphylococcal infection
  4. LINEZOLID [Suspect]
     Active Substance: LINEZOLID
     Indication: Corynebacterium infection
  5. CIPROFLOXACIN [Concomitant]
     Active Substance: CIPROFLOXACIN
     Indication: Serratia infection
     Route: 065
  6. CIPROFLOXACIN [Concomitant]
     Active Substance: CIPROFLOXACIN
     Indication: Klebsiella infection
  7. CIPROFLOXACIN [Concomitant]
     Active Substance: CIPROFLOXACIN
     Indication: Staphylococcal infection
  8. CIPROFLOXACIN [Concomitant]
     Active Substance: CIPROFLOXACIN
     Indication: Corynebacterium infection

REACTIONS (2)
  - Glossitis [Recovered/Resolved]
  - Papillitis [Recovered/Resolved]
